FAERS Safety Report 9376152 (Version 1)
Quarter: 2013Q2

REPORT INFORMATION
  Report Type: Spontaneous
  Country: JP (occurrence: JP)
  Receive Date: 20130629
  Receipt Date: 20130629
  Transmission Date: 20140414
  Serious: Yes (Hospitalization)
  Sender: FDA-Public Use
  Company Number: JP-MYLANLABS-2013S1013687

PATIENT
  Age: 70 Year
  Sex: Male
  Weight: 62 kg

DRUGS (1)
  1. LITHIUM [Suspect]
     Indication: BIPOLAR DISORDER
     Dosage: 500 MG/DAY OVER PREVIOUS 3 MONTHS
     Route: 065

REACTIONS (3)
  - Cardiac tamponade [Recovered/Resolved]
  - Toxicity to various agents [Recovered/Resolved]
  - Hypothyroidism [Recovered/Resolved]
